FAERS Safety Report 25525579 (Version 3)
Quarter: 2025Q3

REPORT INFORMATION
  Report Type: Spontaneous
  Country: US (occurrence: US)
  Receive Date: 20250707
  Receipt Date: 20250819
  Transmission Date: 20251020
  Serious: No
  Sender: PFIZER
  Company Number: US-PFIZER INC-202500075616

PATIENT
  Age: 50 Year
  Sex: Male

DRUGS (2)
  1. CIBINQO [Suspect]
     Active Substance: ABROCITINIB
     Indication: Dermatitis atopic
     Dates: start: 202212
  2. CIBINQO [Suspect]
     Active Substance: ABROCITINIB
     Dosage: TAKE 1 TABLET BY MOUTH TIME A DAY
     Route: 048

REACTIONS (4)
  - Back injury [Unknown]
  - Condition aggravated [Unknown]
  - Therapeutic response unexpected [Unknown]
  - Hair growth abnormal [Unknown]
